FAERS Safety Report 17468213 (Version 2)
Quarter: 2020Q1

REPORT INFORMATION
  Report Type: Spontaneous
  Country: JP (occurrence: JP)
  Receive Date: 20200227
  Receipt Date: 20200304
  Transmission Date: 20200409
  Serious: Yes (Life-Threatening, Hospitalization, Other)
  Sender: FDA-Public Use
  Company Number: JP-PFIZER INC-2020077700

PATIENT
  Age: 44 Year
  Sex: Female

DRUGS (1)
  1. MEDROXYPROGESTERONE ACETATE. [Suspect]
     Active Substance: MEDROXYPROGESTERONE ACETATE
     Indication: MANAGEMENT OF REPRODUCTION
     Dosage: HIGH-DOSE

REACTIONS (3)
  - Product use in unapproved indication [Unknown]
  - Ovarian cancer [Recovered/Resolved]
  - Off label use [Unknown]
